FAERS Safety Report 18835263 (Version 2)
Quarter: 2022Q1

REPORT INFORMATION
  Report Type: Spontaneous
  Country: US (occurrence: US)
  Receive Date: 20210203
  Receipt Date: 20220127
  Transmission Date: 20220423
  Serious: No
  Sender: FDA-Public Use
  Company Number: US-ALLERGAN-2044506US

PATIENT
  Sex: Female

DRUGS (2)
  1. BOTOX [Suspect]
     Active Substance: ONABOTULINUMTOXINA
     Indication: Facial spasm
     Dosage: 2.5 UNITS, SINGLE
     Dates: start: 20201023, end: 20201023
  2. BOTOX [Suspect]
     Active Substance: ONABOTULINUMTOXINA
     Indication: Bell^s palsy
     Dosage: UNK, SINGLE
     Dates: start: 20201023, end: 20201023

REACTIONS (2)
  - Off label use [Unknown]
  - Therapeutic response shortened [Unknown]
